FAERS Safety Report 7584727-9 (Version None)
Quarter: 2011Q2

REPORT INFORMATION
  Report Type: 
  Country: None (occurrence: None)
  Receive Date: 20110630
  Receipt Date: 20110617
  Transmission Date: 20111010
  Serious: Yes (Hospitalization, Other)
  Sender: FDA-Public Use
  Company Number: PHHY2011BR54187

PATIENT
  Sex: Female
  Weight: 71 kg

DRUGS (3)
  1. DIOVAN [Suspect]
     Indication: HYPERTENSION
  2. DIOVAN [Suspect]
     Dosage: 1 DF, DAILY
  3. EUTHYROX [Concomitant]
     Indication: THYROID DISORDER
     Dosage: 1 DF, DAILY
     Route: 048

REACTIONS (2)
  - TACHYCARDIA [None]
  - SYNCOPE [None]
